FAERS Safety Report 24555874 (Version 1)
Quarter: 2024Q4

REPORT INFORMATION
  Report Type: Spontaneous
  Country: CA (occurrence: CA)
  Receive Date: 20241028
  Receipt Date: 20241028
  Transmission Date: 20250115
  Serious: Yes (Other)
  Sender: PFIZER
  Company Number: CA-PFIZER INC-202400286711

PATIENT
  Age: 62 Year
  Sex: Female

DRUGS (2)
  1. XELJANZ XR [Suspect]
     Active Substance: TOFACITINIB CITRATE
     Indication: Rheumatoid arthritis
     Dosage: 11 MG, 1X/DAY
     Route: 048
     Dates: start: 20200610
  2. CELEBREX [Concomitant]
     Active Substance: CELECOXIB
     Dosage: 1 DF (UNKNOWN DOSAGE FOR 14 DAYS)
     Dates: start: 2020, end: 2020

REACTIONS (1)
  - Diabetes mellitus [Unknown]
